FAERS Safety Report 5241056-6 (Version None)
Quarter: 2007Q1

REPORT INFORMATION
  Report Type: 
  Country: None (occurrence: None)
  Receive Date: 20070213
  Receipt Date: 20070213
  Transmission Date: 20070707
  Serious: No
  Sender: FDA-Public Use
  Company Number: None

PATIENT
  Age: 16 Year
  Sex: Male
  Weight: 85 kg

DRUGS (2)
  1. SERTRALINE [Suspect]
     Indication: AUTISM
     Dosage: 100 MG 1.5 QAM 2 QHS PO
     Route: 048
  2. SERTRALINE [Suspect]
     Indication: OBSESSIVE THOUGHTS
     Dosage: 100 MG 1.5 QAM 2 QHS PO
     Route: 048

REACTIONS (6)
  - ABNORMAL BEHAVIOUR [None]
  - AGGRESSION [None]
  - DISEASE RECURRENCE [None]
  - OBSESSIVE THOUGHTS [None]
  - PHARMACEUTICAL PRODUCT COMPLAINT [None]
  - THERAPEUTIC RESPONSE UNEXPECTED WITH DRUG SUBSTITUTION [None]
